FAERS Safety Report 6193278-8 (Version None)
Quarter: 2009Q2

REPORT INFORMATION
  Report Type: 
  Country: None (occurrence: None)
  Receive Date: 20090518
  Receipt Date: 20090511
  Transmission Date: 20091009
  Serious: Yes (Other)
  Sender: FDA-Public Use
  Company Number: B0574295A

PATIENT
  Age: 52 Year
  Sex: Male

DRUGS (1)
  1. HEPTODIN [Suspect]
     Dosage: 100MG PER DAY
     Route: 048
     Dates: start: 20090224

REACTIONS (2)
  - ALANINE AMINOTRANSFERASE INCREASED [None]
  - ASPARTATE AMINOTRANSFERASE INCREASED [None]
